FAERS Safety Report 8342820-7 (Version None)
Quarter: 2012Q2

REPORT INFORMATION
  Report Type: 
  Country: None (occurrence: None)
  Receive Date: 20120504
  Receipt Date: 20120504
  Transmission Date: 20120825
  Serious: Yes (Hospitalization)
  Sender: FDA-Public Use
  Company Number: None

PATIENT
  Sex: Male
  Weight: 81.9 kg

DRUGS (1)
  1. SUNITINIB MALATE [Suspect]
     Dosage: 1400 MG

REACTIONS (11)
  - SPINAL CORD COMPRESSION [None]
  - FLANK PAIN [None]
  - DIALYSIS [None]
  - HEPATIC ENZYME INCREASED [None]
  - METASTASES TO LUNG [None]
  - METASTASES TO SPINE [None]
  - GENERAL PHYSICAL HEALTH DETERIORATION [None]
  - HYPOTENSION [None]
  - METASTASES TO LYMPH NODES [None]
  - NEOPLASM PROGRESSION [None]
  - SEPSIS [None]
